FAERS Safety Report 5977124-0 (Version None)
Quarter: 2008Q4

REPORT INFORMATION
  Report Type: 
  Country: None (occurrence: None)
  Receive Date: 20081203
  Receipt Date: 20081122
  Transmission Date: 20090506
  Serious: Yes (Other)
  Sender: FDA-Public Use
  Company Number: US-ROCHE-598843

PATIENT
  Age: 64 Year
  Sex: Female

DRUGS (2)
  1. BONIVA [Suspect]
     Indication: PROPHYLAXIS
     Route: 048
     Dates: start: 20080901
  2. PAXIL [Concomitant]
     Route: 048
     Dates: start: 19980101

REACTIONS (2)
  - HIP ARTHROPLASTY [None]
  - PAIN IN EXTREMITY [None]
